FAERS Safety Report 14888812 (Version 1)
Quarter: 2018Q2

REPORT INFORMATION
  Report Type: Spontaneous
  Country: US (occurrence: US)
  Receive Date: 20180513
  Receipt Date: 20180513
  Transmission Date: 20180711
  Serious: Yes (Other)
  Sender: FDA-Public Use
  Company Number: US-AMGEN-USASP2018062303

PATIENT
  Age: 74 Year
  Sex: Female

DRUGS (1)
  1. PROLIA [Suspect]
     Active Substance: DENOSUMAB
     Indication: OSTEOPOROSIS
     Dosage: UNK UNK, Q6MO
     Route: 065

REACTIONS (7)
  - Asthenia [Unknown]
  - Dysstasia [Unknown]
  - Hip fracture [Unknown]
  - Arthralgia [Unknown]
  - Pain [Unknown]
  - Hip surgery [Unknown]
  - Pain in extremity [Unknown]

NARRATIVE: CASE EVENT DATE: 201802
